FAERS Safety Report 8414881-8 (Version None)
Quarter: 2012Q2

REPORT INFORMATION
  Report Type: 
  Country: None (occurrence: None)
  Receive Date: 20120601
  Receipt Date: 20120601
  Transmission Date: 20120825
  Serious: Yes (Hospitalization)
  Sender: FDA-Public Use
  Company Number: None

PATIENT
  Age: 49 Year
  Sex: Female

DRUGS (1)
  1. FORTEO [Suspect]
     Dosage: 20MCG DAILY SQ
     Route: 058
     Dates: start: 20110616, end: 20120501

REACTIONS (4)
  - HYPERCALCAEMIA [None]
  - RESPIRATORY FAILURE [None]
  - ASTHENIA [None]
  - CONFUSIONAL STATE [None]
